FAERS Safety Report 11420131 (Version 1)
Quarter: 2015Q3

REPORT INFORMATION
  Report Type: Spontaneous
  Country: US (occurrence: None)
  Receive Date: 20150825
  Receipt Date: 20150825
  Transmission Date: 20151125
  Serious: No
  Sender: FDA-Public Use
  Company Number: None

PATIENT
  Age: 65 Year
  Sex: Female
  Weight: 75.75 kg

DRUGS (4)
  1. ALPRAZOLAM. [Suspect]
     Active Substance: ALPRAZOLAM
     Indication: PANIC ATTACK
  2. COLACE [Concomitant]
     Active Substance: DOCUSATE SODIUM
  3. VENTOLIN ASTHMA INHALER [Concomitant]
  4. METOMUCIL [Concomitant]

REACTIONS (10)
  - Throat irritation [None]
  - Eye irritation [None]
  - Aptyalism [None]
  - Product substitution issue [None]
  - Product quality issue [None]
  - Glossodynia [None]
  - Tongue dry [None]
  - Pruritus generalised [None]
  - Rash [None]
  - Weight decreased [None]

NARRATIVE: CASE EVENT DATE: 20150719
